FAERS Safety Report 18181624 (Version 1)
Quarter: 2020Q3

REPORT INFORMATION
  Report Type: Spontaneous
  Country: ES (occurrence: ES)
  Receive Date: 20200821
  Receipt Date: 20200821
  Transmission Date: 20201103
  Serious: Yes (Hospitalization)
  Sender: FDA-Public Use
  Company Number: ES-CADILA HEALTHCARE LIMITED-ES-ZYDUS-028246

PATIENT

DRUGS (3)
  1. NIMODIPINO [Suspect]
     Active Substance: NIMODIPINE
     Indication: CELL DEATH
     Dosage: ()
     Route: 048
     Dates: start: 20160711, end: 20160711
  2. CARVEDILOL. [Suspect]
     Active Substance: CARVEDILOL
     Indication: CELL DEATH
     Dosage: ()
     Route: 048
     Dates: start: 20160711, end: 20160711
  3. LORAZEPAM. [Suspect]
     Active Substance: LORAZEPAM
     Indication: CELL DEATH
     Dosage: ()
     Route: 048
     Dates: start: 20160711, end: 20160711

REACTIONS (3)
  - Depressed level of consciousness [Recovered/Resolved]
  - Hypotension [Recovered/Resolved]
  - Haemodynamic instability [Recovered/Resolved]

NARRATIVE: CASE EVENT DATE: 20160711
